FAERS Safety Report 13561059 (Version 4)
Quarter: 2017Q3

REPORT INFORMATION
  Report Type: Report from Study
  Country: JP (occurrence: JP)
  Receive Date: 20170518
  Receipt Date: 20170906
  Transmission Date: 20171127
  Serious: Yes (Life-Threatening, Other)
  Sender: FDA-Public Use
  Company Number: JP-ACTELION-A-CH2017-153823

PATIENT
  Age: 62 Year
  Sex: Male

DRUGS (5)
  1. DIART [Concomitant]
     Active Substance: AZOSEMIDE
  2. BERASUS [Concomitant]
     Active Substance: BERAPROST SODIUM
  3. OPSUMIT [Suspect]
     Active Substance: MACITENTAN
     Indication: PULMONARY ARTERIAL HYPERTENSION
     Dosage: 10 MG, QD
     Route: 048
     Dates: start: 20161122, end: 20170420
  4. ANPLAG [Concomitant]
     Active Substance: SARPOGRELATE
  5. ADCIRCA [Concomitant]
     Active Substance: TADALAFIL

REACTIONS (8)
  - Anaemia [Recovering/Resolving]
  - Transfusion [Unknown]
  - Hepatic cancer [Recovering/Resolving]
  - Haemoglobin decreased [Recovering/Resolving]
  - Hepatic cirrhosis [Recovering/Resolving]
  - Red blood cell count decreased [Recovering/Resolving]
  - Haematocrit decreased [Recovering/Resolving]
  - Platelet count decreased [Recovering/Resolving]

NARRATIVE: CASE EVENT DATE: 20170420
